FAERS Safety Report 9691542 (Version 1)
Quarter: 2013Q4

REPORT INFORMATION
  Report Type: Spontaneous
  Country: PL (occurrence: PL)
  Receive Date: 20131115
  Receipt Date: 20131115
  Transmission Date: 20140711
  Serious: Yes (Other)
  Sender: FDA-Public Use
  Company Number: PL-ROCHE-1258690

PATIENT
  Age: 66 Year
  Sex: Female

DRUGS (1)
  1. LUCENTIS [Suspect]
     Indication: PRODUCT USED FOR UNKNOWN INDICATION
     Route: 050

REACTIONS (6)
  - Endophthalmitis [Unknown]
  - Hypopyon [Unknown]
  - Eye pain [Unknown]
  - Eye irritation [Unknown]
  - Photophobia [Unknown]
  - Visual acuity reduced [Unknown]
